FAERS Safety Report 4999626-6 (Version None)
Quarter: 2006Q2

REPORT INFORMATION
  Report Type: 
  Country: None (occurrence: None)
  Receive Date: 20060511
  Receipt Date: 20050606
  Transmission Date: 20061013
  Serious: Yes (Hospitalization)
  Sender: FDA-Public Use
  Company Number: US-MERCK-0506USA01316

PATIENT
  Age: 57 Year
  Sex: Male
  Weight: 102 kg

DRUGS (1)
  1. VIOXX [Suspect]
     Indication: BACK PAIN
     Route: 048
     Dates: start: 20000601, end: 20030701

REACTIONS (5)
  - ADVERSE EVENT [None]
  - ANGIOGRAM [None]
  - CHEST PAIN [None]
  - HEART RATE INCREASED [None]
  - MYOCARDIAL INFARCTION [None]
